FAERS Safety Report 8486290-7 (Version None)
Quarter: 2012Q3

REPORT INFORMATION
  Report Type: 
  Country: None (occurrence: None)
  Receive Date: 20120703
  Receipt Date: 20120622
  Transmission Date: 20120928
  Serious: Yes (Death, Hospitalization)
  Sender: FDA-Public Use
  Company Number: US-GLAXOSMITHKLINE-A0799181A

PATIENT
  Age: 68 Year
  Sex: Male

DRUGS (5)
  1. LOVASTATIN [Concomitant]
  2. LISINOPRIL [Concomitant]
  3. RESTORIL [Concomitant]
  4. AVANDIA [Suspect]
     Indication: DIABETES MELLITUS
     Dosage: 4MG PER DAY
     Route: 048
     Dates: end: 20070601
  5. ZOLOFT [Concomitant]

REACTIONS (4)
  - DEATH [None]
  - CARDIAC ARREST [None]
  - MYOCARDIAL INFARCTION [None]
  - HEART INJURY [None]
